FAERS Safety Report 6479604 (Version 4)
Quarter: 2018Q4

REPORT INFORMATION
  Report Type: Spontaneous
  Country: IT (occurrence: IT)
  Receive Date: 20071203
  Receipt Date: 20181205
  Transmission Date: 20190205
  Serious: Yes (Hospitalization, Other)
  Sender: FDA-Public Use
  Company Number: IT-AVENTIS-200715636EU

PATIENT
  Age: 86 Year
  Sex: Female

DRUGS (7)
  1. TIMOPTOL [Concomitant]
     Active Substance: TIMOLOL
     Dosage: UNK
  2. GLIBOMET [Concomitant]
     Active Substance: GLYBURIDE\METFORMIN HYDROCHLORIDE
     Route: 048
  3. EFEXOR [Concomitant]
     Active Substance: VENLAFAXINE HYDROCHLORIDE
     Route: 048
  4. ALLOPURINOL. [Suspect]
     Active Substance: ALLOPURINOL
     Indication: HYPERURICAEMIA
     Dosage: 300 MG,QD
     Route: 048
     Dates: start: 20070901
  5. TRIATEC (RAMIPRIL) [Suspect]
     Active Substance: RAMIPRIL
     Indication: HYPERTENSION
     Dosage: 2.5 MG,QD
     Route: 048
     Dates: start: 20071001
  6. COUMADINE [Concomitant]
     Active Substance: WARFARIN SODIUM
     Route: 048
  7. LASIX [Suspect]
     Active Substance: FUROSEMIDE
     Indication: HYPERTENSION
     Dosage: 25 MG,QD
     Route: 048
     Dates: start: 20071001

REACTIONS (2)
  - Drug hypersensitivity [Unknown]
  - Toxic skin eruption [Unknown]

NARRATIVE: CASE EVENT DATE: 20071020
